FAERS Safety Report 13922316 (Version 2)
Quarter: 2018Q3

REPORT INFORMATION
  Report Type: Spontaneous
  Country: GB (occurrence: GB)
  Receive Date: 20170830
  Receipt Date: 20180801
  Transmission Date: 20181010
  Serious: Yes (Other)
  Sender: FDA-Public Use
  Company Number: PHHY2017GB124961

PATIENT
  Age: 29 Year
  Sex: Male

DRUGS (2)
  1. VENLAFAXINE [Suspect]
     Active Substance: VENLAFAXINE HYDROCHLORIDE
     Indication: PANIC ATTACK
     Dosage: 150 MG, QD
     Route: 065
  2. OLANZAPINE. [Suspect]
     Active Substance: OLANZAPINE
     Indication: PANIC ATTACK
     Dosage: 10 MG, QD
     Route: 065

REACTIONS (17)
  - Headache [Recovered/Resolved]
  - Influenza like illness [Recovered/Resolved]
  - Speech disorder [Recovered/Resolved]
  - Body temperature increased [Recovered/Resolved]
  - Memory impairment [Recovered/Resolved]
  - Encephalitis autoimmune [Recovered/Resolved]
  - Sleep apnoea syndrome [Recovered/Resolved]
  - Somnolence [Recovered/Resolved]
  - Bradyphrenia [Recovered/Resolved]
  - Thinking abnormal [Recovered/Resolved]
  - Delusion [Recovered/Resolved]
  - Middle insomnia [Recovered/Resolved]
  - Lethargy [Recovered/Resolved]
  - Snoring [Recovered/Resolved]
  - Hypersomnia [Recovered/Resolved]
  - Apnoea [Recovered/Resolved]
  - Impulsive behaviour [Recovered/Resolved]
